FAERS Safety Report 5683020-9 (Version None)
Quarter: 2008Q1

REPORT INFORMATION
  Report Type: 
  Country: None (occurrence: None)
  Receive Date: 20080327
  Receipt Date: 20080324
  Transmission Date: 20080703
  Serious: Yes (Hospitalization)
  Sender: FDA-Public Use
  Company Number: US-BAXTER-2008BH002685

PATIENT
  Age: 56 Year
  Sex: Female
  Weight: 58 kg

DRUGS (9)
  1. HEPARIN SODIUM [Suspect]
     Indication: INTRAVENOUS CATHETER MANAGEMENT
     Route: 042
     Dates: start: 20080219, end: 20080305
  2. VANCOMYCIN [Suspect]
     Indication: POST PROCEDURAL INFECTION
     Route: 042
     Dates: start: 20080219, end: 20080305
  3. CEFEPIME [Suspect]
     Indication: POST PROCEDURAL INFECTION
     Route: 042
     Dates: start: 20080219, end: 20080305
  4. CORGARD [Concomitant]
     Indication: MITRAL VALVE PROLAPSE
     Route: 048
  5. GABAPENTIN [Concomitant]
     Indication: NEURALGIA
     Route: 048
  6. HYDROCODONE BITARTRATE [Concomitant]
     Indication: BACK PAIN
     Dosage: DOSE UNIT:UNKNOWN
     Route: 048
  7. CYCLOBENZAPRINE HCL [Concomitant]
     Indication: BACK PAIN
     Dosage: DOSE UNIT:UNKNOWN
     Route: 048
  8. WELLBUTRIN [Concomitant]
     Indication: DRUG USE FOR UNKNOWN INDICATION
     Dosage: DOSE UNIT:UNKNOWN
     Route: 048
  9. NORTRIPTYLINE HCL [Concomitant]
     Indication: DRUG USE FOR UNKNOWN INDICATION
     Dosage: DOSE UNIT:UNKNOWN
     Route: 048

REACTIONS (7)
  - HYPERSENSITIVITY [None]
  - PRURITUS [None]
  - PYREXIA [None]
  - RASH GENERALISED [None]
  - RASH MACULAR [None]
  - SKIN DISCOLOURATION [None]
  - SKIN EXFOLIATION [None]
